FAERS Safety Report 4919639-X (Version None)
Quarter: 2006Q1

REPORT INFORMATION
  Report Type: 
  Country: None (occurrence: None)
  Receive Date: 20060113
  Receipt Date: 20051121
  Transmission Date: 20060701
  Serious: No
  Sender: FDA-Public Use
  Company Number: 2005SP004068

PATIENT
  Age: 62 Year
  Sex: Male

DRUGS (6)
  1. LUNESTA [Suspect]
     Indication: MIDDLE INSOMNIA
     Dosage: 2 MG;PRN;ORAL
     Route: 048
     Dates: start: 20050901, end: 20051001
  2. ALTACE [Concomitant]
  3. VICODIN [Concomitant]
  4. LOPRESSOR [Concomitant]
  5. SKELAXIN [Concomitant]
  6. SONATA [Concomitant]

REACTIONS (2)
  - CARDIAC FLUTTER [None]
  - DYSGEUSIA [None]
